FAERS Safety Report 5401287-9 (Version None)
Quarter: 2007Q3

REPORT INFORMATION
  Report Type: 
  Country: None (occurrence: None)
  Receive Date: 20070731
  Receipt Date: 20070724
  Transmission Date: 20080115
  Serious: Yes (Other)
  Sender: FDA-Public Use
  Company Number: AT-BRISTOL-MYERS SQUIBB COMPANY-13561725

PATIENT
  Age: 37 Year
  Sex: Male

DRUGS (8)
  1. ABILIFY [Suspect]
     Indication: PERSONALITY DISORDER
     Dosage: 15 MG PO PD, 01-OCT-2006 TO 04-OCT-2006
     Route: 048
     Dates: start: 20060919, end: 20060930
  2. CONVULEX [Suspect]
     Dosage: 100 MG PO ON 29-SEP-2006; 500 MG PO ON 30-SEP-2006
     Route: 048
     Dates: start: 20060928
  3. NOZINAN [Suspect]
     Route: 048
     Dates: start: 20060925, end: 20061002
  4. SEROQUEL [Suspect]
     Dosage: 1600MG PO 26SEP06;1800MG PO 27SEP06-30SEP06;900MG PO 1OCT06;1600MG PO 2OCT06;800MG PO 3OCT06
     Route: 048
     Dates: start: 20060919, end: 20060925
  5. LEPONEX [Concomitant]
     Dosage: 200 MG PO 30-SEP-06
     Route: 048
     Dates: start: 20060928, end: 20060929
  6. AKINETON [Concomitant]
     Route: 048
     Dates: start: 20060929, end: 20061009
  7. BENZODIAZEPINE [Concomitant]
     Dosage: 60-50 MG PO 07-OCT-06-ONGOING
     Route: 048
     Dates: start: 20060919, end: 20061006
  8. TEBOFORTAN [Concomitant]
     Dosage: 40-120MG DAILY.
     Dates: start: 20060928, end: 20061003

REACTIONS (9)
  - BACK PAIN [None]
  - BLOOD CREATININE INCREASED [None]
  - BLOOD LACTATE DEHYDROGENASE INCREASED [None]
  - EXTRAPYRAMIDAL DISORDER [None]
  - HAEMATURIA [None]
  - LEUKOCYTOSIS [None]
  - MYOGLOBIN BLOOD INCREASED [None]
  - RHABDOMYOLYSIS [None]
  - TRANSAMINASES INCREASED [None]
